FAERS Safety Report 4308502-3 (Version None)
Quarter: 2004Q1

REPORT INFORMATION
  Report Type: 
  Country: None (occurrence: None)
  Receive Date: 20040301
  Receipt Date: 20040220
  Transmission Date: 20041129
  Serious: Yes (Death, Hospitalization)
  Sender: FDA-Public Use
  Company Number: PHHO2004MX02802

PATIENT
  Sex: Female

DRUGS (3)
  1. GLEEVEC [Suspect]
     Indication: CHRONIC MYELOID LEUKAEMIA
     Dosage: 600 MG, QD
     Route: 048
     Dates: start: 20030313, end: 20030401
  2. GLEEVEC [Suspect]
     Dosage: 400 MG, QD
     Route: 048
     Dates: start: 20030401, end: 20030401
  3. GLEEVEC [Suspect]
     Dosage: 600 MG, QD
     Route: 048
     Dates: start: 20030401

REACTIONS (6)
  - GASTROINTESTINAL HAEMORRHAGE [None]
  - HEADACHE [None]
  - MALIGNANT NEOPLASM PROGRESSION [None]
  - PANCYTOPENIA [None]
  - PYREXIA [None]
  - SHOCK [None]
